FAERS Safety Report 5578457-2 (Version None)
Quarter: 2007Q4

REPORT INFORMATION
  Report Type: 
  Country: None (occurrence: None)
  Receive Date: 20071231
  Receipt Date: 20071219
  Transmission Date: 20080405
  Serious: Yes (Other)
  Sender: FDA-Public Use
  Company Number: US-PFIZER INC-2007089397

PATIENT
  Sex: Female
  Weight: 82.6 kg

DRUGS (9)
  1. LYRICA [Suspect]
     Indication: NEUROPATHY
     Route: 048
  2. LYRICA [Suspect]
     Indication: NEURALGIA
  3. LYRICA [Suspect]
     Indication: RADICULOPATHY
  4. CELEBREX [Suspect]
  5. PERCOCET [Concomitant]
  6. CLONAZEPAM [Concomitant]
  7. LITHIUM [Concomitant]
  8. AMBIEN [Concomitant]
  9. PROZAC [Concomitant]

REACTIONS (14)
  - ABDOMINAL DISTENSION [None]
  - ABDOMINAL PAIN [None]
  - CLUMSINESS [None]
  - CONSTIPATION [None]
  - COORDINATION ABNORMAL [None]
  - DIARRHOEA [None]
  - GASTROINTESTINAL DISORDER [None]
  - GASTROINTESTINAL SOUNDS ABNORMAL [None]
  - GASTROOESOPHAGEAL REFLUX DISEASE [None]
  - INTESTINAL FUNCTIONAL DISORDER [None]
  - MOVEMENT DISORDER [None]
  - PAIN [None]
  - VOMITING [None]
  - WEIGHT INCREASED [None]
